FAERS Safety Report 9732884 (Version 1)
Quarter: 2013Q4

REPORT INFORMATION
  Report Type: Spontaneous
  Country: US (occurrence: US)
  Receive Date: 20131205
  Receipt Date: 20131205
  Transmission Date: 20140711
  Serious: Yes (Hospitalization)
  Sender: FDA-Public Use
  Company Number: US-TEVA-449000USA

PATIENT
  Age: 41 Year
  Sex: Female

DRUGS (3)
  1. FENTANYL [Suspect]
     Route: 048
  2. TRAZODONE [Suspect]
     Route: 048
  3. BENZODIAZEPINES [Suspect]
     Route: 048

REACTIONS (6)
  - Suicide attempt [Recovered/Resolved]
  - Hypotension [Recovered/Resolved]
  - Somnolence [Recovered/Resolved]
  - Lethargy [Recovered/Resolved]
  - Agitation [Recovered/Resolved]
  - Irritability [Recovered/Resolved]
